FAERS Safety Report 7459533-6 (Version None)
Quarter: 2011Q2

REPORT INFORMATION
  Report Type: 
  Country: None (occurrence: None)
  Receive Date: 20110505
  Receipt Date: 20110427
  Transmission Date: 20111010
  Serious: Yes (Other)
  Sender: FDA-Public Use
  Company Number: FR-NOVOPROD-327439

PATIENT
  Age: 59 Year
  Sex: Female

DRUGS (4)
  1. RAMIPRIL [Suspect]
     Indication: MICROALBUMINURIA
     Dosage: 1 TAB, QD FROM 10 YEARS
     Route: 048
  2. LEVEMIR [Suspect]
     Indication: TYPE 1 DIABETES MELLITUS
     Dosage: UNK
     Route: 058
  3. MEDIATOR [Suspect]
     Indication: DIABETES MELLITUS
     Dosage: UNK
     Dates: start: 20020101, end: 20091101
  4. ATORVASTATIN CALCIUM [Suspect]
     Dosage: 1 TAB, QD FROM 10 YEARS AGO
     Route: 048

REACTIONS (1)
  - ARTHRALGIA [None]
